FAERS Safety Report 24524997 (Version 1)
Quarter: 2024Q4

REPORT INFORMATION
  Report Type: Spontaneous
  Country: US (occurrence: US)
  Receive Date: 20241019
  Receipt Date: 20241019
  Transmission Date: 20250115
  Serious: Yes (Hospitalization, Other)
  Sender: NOVITIUM PHARMA
  Company Number: US-NOVITIUMPHARMA-2024USNVP02266

PATIENT
  Age: 57 Year
  Sex: Male

DRUGS (6)
  1. PREDNISONE [Suspect]
     Active Substance: PREDNISONE
     Indication: Kidney transplant rejection
  2. PREDNISONE [Suspect]
     Active Substance: PREDNISONE
     Indication: Pancreas transplant rejection
  3. TACROLIMUS [Concomitant]
     Active Substance: TACROLIMUS
     Indication: Kidney transplant rejection
     Route: 048
  4. TACROLIMUS [Concomitant]
     Active Substance: TACROLIMUS
     Indication: Pancreas transplant rejection
  5. MYCOPHENOLATE MOFETIL [Concomitant]
     Active Substance: MYCOPHENOLATE MOFETIL
  6. MYCOPHENOLATE MOFETIL [Concomitant]
     Active Substance: MYCOPHENOLATE MOFETIL
     Indication: Pancreas transplant rejection

REACTIONS (3)
  - Pulmonary nocardiosis [Unknown]
  - Pseudomonas infection [Unknown]
  - Treatment noncompliance [Unknown]
